FAERS Safety Report 8168021-3 (Version None)
Quarter: 2012Q1

REPORT INFORMATION
  Report Type: 
  Country: None (occurrence: None)
  Receive Date: 20120227
  Receipt Date: 20120213
  Transmission Date: 20120608
  Serious: Yes (Hospitalization)
  Sender: FDA-Public Use
  Company Number: PHHY2012DE007256

PATIENT
  Sex: Male
  Weight: 90 kg

DRUGS (5)
  1. SANDOSTATIN LAR [Suspect]
     Indication: ACROMEGALY
     Dosage: 10 MG EVERY 28 DAYS
     Route: 030
     Dates: start: 20101213, end: 20110404
  2. SANDOSTATIN LAR [Suspect]
     Dosage: 30 MG EVERY 28 DAYS
     Route: 030
     Dates: start: 20120126
  3. SANDOSTATIN LAR [Suspect]
     Dosage: 20 MG EVERY 28 DAYS
     Route: 030
     Dates: start: 20110502, end: 20110725
  4. SANDOSTATIN LAR [Suspect]
     Dosage: 10 MG EVERY 28 DAYS
     Route: 030
     Dates: start: 20111128, end: 20111128
  5. SANDOSTATIN LAR [Suspect]
     Dosage: 20 MG EVERY 28 DAYS
     Route: 030
     Dates: start: 20111227, end: 20111227

REACTIONS (11)
  - ATRIAL FIBRILLATION [None]
  - MUSCULOSKELETAL STIFFNESS [None]
  - HYPERTENSION [None]
  - CONSTIPATION [None]
  - RENAL FAILURE ACUTE [None]
  - ANGIOPATHY [None]
  - CARDIAC FAILURE CHRONIC [None]
  - URINARY TRACT INFECTION [None]
  - NEOPLASM PROGRESSION [None]
  - UROSEPSIS [None]
  - NORMOCHROMIC NORMOCYTIC ANAEMIA [None]
